FAERS Safety Report 19032169 (Version 1)
Quarter: 2021Q1

REPORT INFORMATION
  Report Type: Report from Study
  Country: CA (occurrence: CA)
  Receive Date: 20210319
  Receipt Date: 20210319
  Transmission Date: 20210420
  Serious: Yes (Other)
  Sender: FDA-Public Use
  Company Number: PHHY2019CA093478

PATIENT
  Age: 80 Year
  Sex: Male

DRUGS (6)
  1. XOLAIR [Suspect]
     Active Substance: OMALIZUMAB
     Dosage: 300 MG, BIW
     Route: 058
     Dates: start: 20190402
  2. SEEBRI BREEZHALER [Suspect]
     Active Substance: GLYCOPYRROLATE
     Indication: ASTHMA
     Dosage: 50 UG, QD
     Route: 065
     Dates: start: 201802
  3. SYMBICORT [Concomitant]
     Active Substance: BUDESONIDE\FORMOTEROL FUMARATE DIHYDRATE
     Indication: PRODUCT USED FOR UNKNOWN INDICATION
     Dosage: 2 DF (200/6 UG), BID (LONG TERM)
     Route: 055
  4. XOLAIR [Suspect]
     Active Substance: OMALIZUMAB
     Dosage: 300 MG, BIW
     Route: 058
     Dates: start: 20190625
  5. XOLAIR [Suspect]
     Active Substance: OMALIZUMAB
     Indication: ASTHMA
     Dosage: 300 MG, BIW
     Route: 058
     Dates: start: 20190318
  6. BRICANYL [Concomitant]
     Active Substance: TERBUTALINE SULFATE
     Indication: PRODUCT USED FOR UNKNOWN INDICATION
     Dosage: 2 DF, QID (PRN ? LONG TERM)
     Route: 055

REACTIONS (9)
  - Skin cancer [Unknown]
  - Body temperature decreased [Unknown]
  - Thermal burn [Unknown]
  - Weight decreased [Unknown]
  - Blood pressure fluctuation [Unknown]
  - Depressed mood [Unknown]
  - Feeling abnormal [Unknown]
  - Injury [Unknown]
  - Drug ineffective [Unknown]

NARRATIVE: CASE EVENT DATE: 201904
